FAERS Safety Report 12350959 (Version 1)
Quarter: 2016Q2

REPORT INFORMATION
  Report Type: Spontaneous
  Country: US (occurrence: US)
  Receive Date: 20160510
  Receipt Date: 20160510
  Transmission Date: 20160815
  Serious: Yes (Other)
  Sender: FDA-Public Use
  Company Number: US-IROKO PHARMACEUTICALS LLC-US-I09001-16-00094

PATIENT
  Age: 66 Year
  Sex: Female

DRUGS (6)
  1. TRAVOPROST [Concomitant]
     Active Substance: TRAVOPROST
     Indication: PRODUCT USED FOR UNKNOWN INDICATION
     Route: 065
  2. ALENDRONATE [Concomitant]
     Active Substance: ALENDRONATE SODIUM
     Indication: PRODUCT USED FOR UNKNOWN INDICATION
     Route: 065
  3. ATENOLOL. [Concomitant]
     Active Substance: ATENOLOL
     Indication: PRODUCT USED FOR UNKNOWN INDICATION
     Route: 065
  4. HYDROCODONE [Concomitant]
     Active Substance: HYDROCODONE
     Indication: PRODUCT USED FOR UNKNOWN INDICATION
     Route: 065
  5. ACETAMINOPHEN. [Concomitant]
     Active Substance: ACETAMINOPHEN
     Indication: PRODUCT USED FOR UNKNOWN INDICATION
     Route: 065
  6. DICLOFENAC AMBIGUOUS [Suspect]
     Active Substance: DICLOFENAC
     Indication: ARTHRITIS
     Route: 048

REACTIONS (7)
  - Gallbladder disorder [Unknown]
  - Cholelithiasis [Unknown]
  - Drug-induced liver injury [Unknown]
  - Off label use [Unknown]
  - Prothrombin time prolonged [Unknown]
  - Ascites [Unknown]
  - Jaundice [Unknown]
